FAERS Safety Report 4455660-6 (Version None)
Quarter: 2004Q3

REPORT INFORMATION
  Report Type: 
  Country: None (occurrence: None)
  Receive Date: 20040917
  Receipt Date: 20040827
  Transmission Date: 20050211
  Serious: Yes (Hospitalization, Other)
  Sender: FDA-Public Use
  Company Number: CA_030605997

PATIENT
  Age: 11 Year
  Sex: Male
  Weight: 32 kg

DRUGS (3)
  1. HUMATROPE [Suspect]
     Indication: GROWTH HORMONE DEFICIENCY
     Dosage: 0.9 MG/6 WEEK
     Dates: start: 20020415
  2. SYNTHROID [Concomitant]
  3. DILANTIN [Concomitant]

REACTIONS (11)
  - ISCHAEMIC STROKE [None]
  - MASTOIDITIS [None]
  - METASTASIS [None]
  - NEOPLASM RECURRENCE [None]
  - NODULE [None]
  - NUCLEAR MAGNETIC RESONANCE IMAGING ABNORMAL [None]
  - OTITIS MEDIA [None]
  - RADIATION INJURY [None]
  - SOFT TISSUE DISORDER [None]
  - SPINAL DISORDER [None]
  - VASCULITIS [None]
